FAERS Safety Report 4636731-8 (Version None)
Quarter: 2005Q2

REPORT INFORMATION
  Report Type: 
  Country: None (occurrence: None)
  Receive Date: 20050414
  Receipt Date: 20050401
  Transmission Date: 20051028
  Serious: Yes (Other)
  Sender: FDA-Public Use
  Company Number: 2005053928

PATIENT
  Age: 77 Year
  Sex: Female

DRUGS (1)
  1. AMPICILLIN/SULBACTAM (SULBACTAM, AMPICILLIN) [Suspect]
     Indication: POSTOPERATIVE CARE
     Dosage: 9 GRAM (1 IN 1 TOTAL), INTRAVENOUS
     Route: 042
     Dates: start: 20050311, end: 20050311

REACTIONS (4)
  - ALANINE AMINOTRANSFERASE INCREASED [None]
  - ASPARTATE AMINOTRANSFERASE INCREASED [None]
  - HEPATOTOXICITY [None]
  - PROTHROMBIN TIME PROLONGED [None]
